FAERS Safety Report 8983861 (Version 2)
Quarter: 2013Q1

REPORT INFORMATION
  Report Type: Spontaneous
  Country: IT (occurrence: IT)
  Receive Date: 20121224
  Receipt Date: 20130201
  Transmission Date: 20140127
  Serious: No
  Sender: FDA-Public Use
  Company Number: IT-ROCHE-1172645

PATIENT
  Age: 30 Year
  Sex: Female
  Weight: 66 kg

DRUGS (1)
  1. MABTHERA [Suspect]
     Indication: MULTIPLE SCLEROSIS
     Route: 042
     Dates: start: 20121206, end: 20121206

REACTIONS (2)
  - Throat tightness [Recovered/Resolved]
  - Rash pruritic [Recovered/Resolved]
